FAERS Safety Report 9169287 (Version 3)
Quarter: 2014Q1

REPORT INFORMATION
  Report Type: Spontaneous
  Country: US (occurrence: US)
  Receive Date: 20130318
  Receipt Date: 20140221
  Transmission Date: 20141002
  Serious: Yes (Hospitalization, Disabling)
  Sender: FDA-Public Use
  Company Number: US-009507513-1303USA007574

PATIENT
  Sex: Male

DRUGS (2)
  1. PROPECIA [Suspect]
     Indication: ANDROGENETIC ALOPECIA
     Dosage: 1 MG, QD
     Route: 048
     Dates: start: 20040115, end: 20101005
  2. ROGAINE [Concomitant]
     Indication: ANDROGENETIC ALOPECIA
     Dosage: BID
     Route: 061

REACTIONS (11)
  - Sperm concentration decreased [Unknown]
  - Intervertebral disc protrusion [Not Recovered/Not Resolved]
  - Knee operation [Recovered/Resolved]
  - Erectile dysfunction [Unknown]
  - Cognitive disorder [Not Recovered/Not Resolved]
  - Insomnia [Unknown]
  - Fatigue [Unknown]
  - Gynaecomastia [Not Recovered/Not Resolved]
  - Sexual dysfunction [Not Recovered/Not Resolved]
  - Libido decreased [Unknown]
  - Rash [Unknown]
